FAERS Safety Report 4459663-7 (Version None)
Quarter: 2004Q3

REPORT INFORMATION
  Report Type: 
  Country: None (occurrence: None)
  Receive Date: 20040923
  Receipt Date: 20040923
  Transmission Date: 20050211
  Serious: No
  Sender: FDA-Public Use
  Company Number: None

PATIENT
  Age: 79 Year
  Weight: 69 kg

DRUGS (11)
  1. NESIRITIDE  1.5MG/ 250ML [Suspect]
     Indication: CARDIAC FAILURE CONGESTIVE
     Dosage: 0.1MCG/KG/M  INTRAVENOUS
     Route: 042
     Dates: start: 20040204, end: 20040205
  2. MIACALCIN [Concomitant]
  3. LASIX [Concomitant]
  4. AZULFADINE [Concomitant]
  5. LABETALOL HCL [Concomitant]
  6. LIPITOR [Concomitant]
  7. COREG [Concomitant]
  8. IMDUR [Concomitant]
  9. DARVOCET-N 100 [Concomitant]
  10. TRICOR [Concomitant]
  11. LOVENOX [Concomitant]

REACTIONS (2)
  - HYPOTENSION [None]
  - INFUSION RELATED REACTION [None]
